FAERS Safety Report 6697747-3 (Version None)
Quarter: 2010Q2

REPORT INFORMATION
  Report Type: 
  Country: None (occurrence: None)
  Receive Date: 20100423
  Receipt Date: 20100413
  Transmission Date: 20101027
  Serious: Yes (Other)
  Sender: FDA-Public Use
  Company Number: ALL1-2001-02205

PATIENT
  Sex: Male

DRUGS (1)
  1. DAYTRANA [Suspect]
     Indication: DRUG USE FOR UNKNOWN INDICATION
     Dosage: MG, 1X/DAY;QD, TRANSDERMAL
     Route: 062

REACTIONS (1)
  - TYPE 1 DIABETES MELLITUS [None]
